FAERS Safety Report 7102625-1 (Version None)
Quarter: 2010Q4

REPORT INFORMATION
  Report Type: 
  Country: None (occurrence: None)
  Receive Date: 20101115
  Receipt Date: 20101104
  Transmission Date: 20110411
  Serious: Yes (Death)
  Sender: FDA-Public Use
  Company Number: B0683539A

PATIENT
  Sex: Male
  Weight: 63 kg

DRUGS (57)
  1. ALKERAN [Suspect]
     Indication: CORD BLOOD TRANSPLANT THERAPY
     Dosage: 130MGM2 PER DAY
     Route: 042
     Dates: start: 20050329, end: 20050329
  2. FLUDARA [Suspect]
     Indication: CORD BLOOD TRANSPLANT THERAPY
     Dosage: 12MGM2 PER DAY
     Route: 042
     Dates: start: 20050325, end: 20050325
  3. GRAN [Concomitant]
     Dates: start: 20050401, end: 20050419
  4. CYCLOSPORINE [Concomitant]
     Indication: IMMUNOSUPPRESSION
     Dosage: 20MG PER DAY
     Route: 065
     Dates: start: 20050330, end: 20050529
  5. METHOTREXATE [Concomitant]
     Indication: IMMUNOSUPPRESSION
     Dosage: 3MG PER DAY
     Dates: start: 20050401, end: 20050406
  6. SIMPLE SYRUP [Concomitant]
     Route: 048
     Dates: start: 20050322
  7. PARIET [Concomitant]
     Dosage: 10MG PER DAY
     Route: 048
     Dates: start: 20050322
  8. ZYLORIC [Concomitant]
     Dosage: 200MG PER DAY
     Route: 048
     Dates: start: 20050322
  9. KALIMATE [Concomitant]
     Route: 048
     Dates: start: 20050322
  10. ZOVIRAX [Concomitant]
     Dosage: 400MG PER DAY
     Route: 048
     Dates: start: 20050327
  11. DIFLUCAN [Concomitant]
     Dosage: 400MG PER DAY
     Route: 048
     Dates: start: 20050329
  12. PURSENNID [Concomitant]
     Dosage: 24MG PER DAY
     Route: 048
     Dates: start: 20050327
  13. LAXOBERON [Concomitant]
     Dosage: 5MG PER DAY
     Route: 048
     Dates: start: 20050325
  14. TELEMIN SOFT [Concomitant]
     Dosage: 10MG PER DAY
     Route: 054
     Dates: start: 20050330
  15. GLYCEROL [Concomitant]
     Dosage: 240ML PER DAY
     Route: 054
     Dates: start: 20050331
  16. SOLITA-T [Concomitant]
     Dosage: 1500ML PER DAY
     Route: 042
     Dates: start: 20050322
  17. GANCICLOVIR [Concomitant]
     Dosage: 500ML PER DAY
     Route: 042
     Dates: start: 20050323
  18. VENOGLOBULIN [Concomitant]
     Route: 042
     Dates: start: 20050325
  19. SEROTONE [Concomitant]
     Dosage: 10MG PER DAY
     Route: 042
     Dates: start: 20050325
  20. KYTRIL [Concomitant]
     Dosage: 3MG PER DAY
     Route: 042
     Dates: start: 20050329
  21. MEYLON [Concomitant]
     Dosage: 60ML PER DAY
     Route: 042
     Dates: start: 20050329
  22. FUROSEMIDE [Concomitant]
     Dosage: 20MG PER DAY
     Route: 042
     Dates: start: 20050329
  23. SOLU-MEDROL [Concomitant]
     Dosage: 1IUAX PER DAY
     Route: 042
     Dates: start: 20050329
  24. FUROSEMIDE [Concomitant]
     Dosage: 20MG PER DAY
     Route: 048
     Dates: start: 20050422
  25. ENTERONON-R [Concomitant]
     Dosage: 3G PER DAY
     Route: 048
     Dates: start: 20050422
  26. LOXONIN [Concomitant]
     Dosage: 60MG PER DAY
     Route: 048
     Dates: start: 20050404
  27. MYSLEE [Concomitant]
     Dosage: 10MG PER DAY
     Route: 048
     Dates: start: 20050401
  28. URSO 250 [Concomitant]
     Dosage: 600MG PER DAY
     Route: 048
     Dates: start: 20050420
  29. TAKEPRON [Concomitant]
     Dosage: 1IUAX PER DAY
     Route: 048
     Dates: start: 20050421
  30. LEVOFLOXACIN [Concomitant]
     Dosage: 300MG PER DAY
     Route: 048
     Dates: start: 20050421
  31. LOPEMIN [Concomitant]
     Dosage: 1MG PER DAY
     Route: 048
     Dates: start: 20050422
  32. AZUNOL [Concomitant]
     Dosage: 15ML PER DAY
     Route: 002
     Dates: start: 20050405
  33. ELASE [Concomitant]
     Dosage: 5IUAX PER DAY
     Route: 061
     Dates: start: 20050410
  34. HACHIAZULE [Concomitant]
     Dosage: 20MG PER DAY
     Route: 002
     Dates: start: 20050410
  35. XYLOCAINE [Concomitant]
     Dosage: 20ML PER DAY
     Route: 061
     Dates: start: 20050410
  36. CHLORHEXIDINE [Concomitant]
     Dosage: 500ML PER DAY
     Route: 061
     Dates: start: 20050413
  37. BORRAZA-G [Concomitant]
     Dosage: 33.6G PER DAY
     Route: 061
     Dates: start: 20050413
  38. HIBITANE [Concomitant]
     Dosage: 100ML PER DAY
     Route: 061
     Dates: start: 20050418
  39. POSTERISAN [Concomitant]
     Dosage: 56G PER DAY
     Route: 061
     Dates: start: 20050421
  40. FUNGUARD [Concomitant]
     Dosage: 50MG PER DAY
     Route: 042
     Dates: start: 20050401
  41. SANDIMMUNE [Concomitant]
     Dosage: 5ML PER DAY
     Route: 042
     Dates: start: 20050401
  42. GLUCOSE [Concomitant]
     Dosage: 250ML PER DAY
     Route: 042
     Dates: start: 20050401
  43. SOLITA T [Concomitant]
     Dosage: 2000ML PER DAY
     Route: 042
     Dates: start: 20050401
  44. NEOAMIYU [Concomitant]
     Dosage: 400ML PER DAY
     Route: 042
     Dates: start: 20050403
  45. VITAJECT [Concomitant]
     Dosage: 1IUAX PER DAY
     Route: 042
     Dates: start: 20050404
  46. TIENAM [Concomitant]
     Dosage: 500MG PER DAY
     Route: 042
     Dates: start: 20050401
  47. OMEPRAL [Concomitant]
     Dosage: 1IUAX PER DAY
     Route: 042
     Dates: start: 20050405
  48. ZOVIRAX [Concomitant]
     Dosage: 250MG PER DAY
     Route: 042
     Dates: start: 20050405
  49. SOLDEM [Concomitant]
     Dosage: 2000ML PER DAY
     Route: 042
     Dates: start: 20050408
  50. ELEMENMIC [Concomitant]
     Dosage: 2ML PER DAY
     Route: 042
     Dates: start: 20050408
  51. MORPHINE HYDROCHLORIDE [Concomitant]
     Dosage: 4ML PER DAY
     Dates: start: 20050410
  52. ASPARA K [Concomitant]
     Dosage: 20ML PER DAY
     Route: 042
     Dates: start: 20050411
  53. PRODIF [Concomitant]
     Dosage: 5ML PER DAY
     Route: 042
     Dates: start: 20050418
  54. UNKNOWN MEDICATION [Concomitant]
     Dosage: 2000ML PER DAY
     Route: 042
     Dates: start: 20050419
  55. NEO-MINOPHAGEN-C [Concomitant]
     Dosage: 40ML PER DAY
     Route: 042
     Dates: start: 20050419
  56. TATHION [Concomitant]
     Dosage: 200MG PER DAY
     Dates: start: 20050419
  57. ISODINE [Concomitant]
     Dosage: 5ML PER DAY
     Route: 002
     Dates: start: 20050409

REACTIONS (1)
  - ENCEPHALITIS FUNGAL [None]
